FAERS Safety Report 9109841 (Version 2)
Quarter: 2013Q1

REPORT INFORMATION
  Report Type: Spontaneous
  Country: PT (occurrence: PT)
  Receive Date: 20130222
  Receipt Date: 20130320
  Transmission Date: 20140127
  Serious: Yes (Other)
  Sender: FDA-Public Use
  Company Number: PT-JNJFOC-20130210437

PATIENT
  Age: 29 Year
  Sex: Female

DRUGS (5)
  1. PALEXIA RETARD [Suspect]
     Indication: POST LAMINECTOMY SYNDROME
     Route: 048
     Dates: start: 20121206, end: 20121227
  2. PALEXIA RETARD [Suspect]
     Indication: POST LAMINECTOMY SYNDROME
     Route: 048
     Dates: start: 20130103, end: 20130208
  3. PARACETAMOL [Concomitant]
     Indication: PRODUCT USED FOR UNKNOWN INDICATION
     Route: 065
  4. ALPRAZOLAM [Concomitant]
     Indication: PRODUCT USED FOR UNKNOWN INDICATION
     Route: 065
     Dates: start: 201209, end: 20121228
  5. AMITRIPTYLINE [Concomitant]
     Indication: PRODUCT USED FOR UNKNOWN INDICATION
     Route: 065

REACTIONS (4)
  - Pain [Recovering/Resolving]
  - Chills [Recovering/Resolving]
  - Hyperhidrosis [Recovering/Resolving]
  - Muscle spasms [Recovered/Resolved]
